FAERS Safety Report 9454540 (Version 2)
Quarter: 2013Q4

REPORT INFORMATION
  Report Type: Report from Study
  Country: FR (occurrence: FR)
  Receive Date: 20130812
  Receipt Date: 20131223
  Transmission Date: 20140711
  Serious: Yes (Hospitalization)
  Sender: FDA-Public Use
  Company Number: FR-GLAXOSMITHKLINE-B0914714A

PATIENT
  Age: 82 Year
  Sex: 0

DRUGS (1)
  1. PAZOPANIB [Suspect]
     Indication: NEOPLASM MALIGNANT
     Dates: start: 20130503

REACTIONS (1)
  - Syncope [Recovered/Resolved]
